FAERS Safety Report 13539614 (Version 2)
Quarter: 2017Q3

REPORT INFORMATION
  Report Type: Report from Study
  Country: JP (occurrence: JP)
  Receive Date: 20170512
  Receipt Date: 20170821
  Transmission Date: 20171127
  Serious: Yes (Other)
  Sender: FDA-Public Use
  Company Number: JP-VIIV HEALTHCARE LIMITED-B0936748A

PATIENT
  Age: 41 Year
  Sex: Male

DRUGS (29)
  1. ISENTRESS [Suspect]
     Active Substance: RALTEGRAVIR POTASSIUM
     Indication: HIV INFECTION
     Dosage: 800 MG, 1D
     Route: 048
     Dates: start: 20090325
  2. ZYLORIC [Concomitant]
     Active Substance: ALLOPURINOL
     Dosage: 100 MG, BID
     Route: 048
     Dates: start: 20120905, end: 20140519
  3. ZOVIRAX [Concomitant]
     Active Substance: ACYCLOVIR
     Indication: HERPES ZOSTER
     Dosage: UNK
     Route: 061
     Dates: start: 20131029, end: 20131104
  4. AMOBAN [Concomitant]
     Active Substance: ZOPICLONE
     Indication: INSOMNIA
     Dosage: 7.5 MG, QD
     Route: 048
     Dates: start: 20130401
  5. ITRIZOLE (ITRACONAZOLE) [Concomitant]
     Indication: ORAL CANDIDIASIS
     Dosage: 20 ML, 1D
     Route: 048
     Dates: start: 20131009, end: 20131015
  6. ITRIZOLE (ITRACONAZOLE) [Concomitant]
     Indication: PROPHYLAXIS
     Dosage: 20 ML, 1D
     Route: 048
     Dates: start: 20131112, end: 20150615
  7. MEYLON [Concomitant]
     Active Substance: SODIUM BICARBONATE
     Indication: DIZZINESS
     Dosage: 60 ML, 1D
     Route: 042
     Dates: start: 20130516, end: 20130516
  8. TRUVADA [Suspect]
     Active Substance: EMTRICITABINE\TENOFOVIR DISOPROXIL FUMARATE
     Indication: HIV INFECTION
     Dosage: 1 DF, 1D
     Route: 048
     Dates: start: 20050609, end: 20170304
  9. EDURANT [Suspect]
     Active Substance: RILPIVIRINE HYDROCHLORIDE
     Indication: HIV INFECTION
     Dosage: 25 MG, 1D
     Route: 048
     Dates: start: 20120905
  10. URSO [Concomitant]
     Active Substance: URSODIOL
     Indication: HEPATITIS B
  11. ZYLORIC [Concomitant]
     Active Substance: ALLOPURINOL
     Indication: HYPERURICAEMIA
     Dosage: 100 MG, 1D
     Dates: start: 20120401, end: 20120904
  12. HEPSERA [Concomitant]
     Active Substance: ADEFOVIR DIPIVOXIL
     Indication: HEPATITIS B
     Dosage: 10 MG, QD
     Route: 048
     Dates: start: 20120401
  13. ITRIZOLE (ITRACONAZOLE) [Concomitant]
     Dosage: 20 ML, QOD
     Route: 048
     Dates: end: 20150615
  14. RETROVIR [Suspect]
     Active Substance: ZIDOVUDINE
     Indication: HIV INFECTION
     Dosage: 600 MG, 1D
     Route: 048
     Dates: start: 20110119
  15. VALTREX [Concomitant]
     Active Substance: VALACYCLOVIR HYDROCHLORIDE
     Indication: HERPES ZOSTER
     Dosage: 1000 MG, TID
     Route: 048
     Dates: start: 20131029, end: 20131104
  16. URSO [Concomitant]
     Active Substance: URSODIOL
     Indication: HEPATITIS B
     Dosage: 200 MG, TID
     Route: 048
     Dates: start: 20120401
  17. FEBURIC [Concomitant]
     Active Substance: FEBUXOSTAT
     Indication: HYPERURICAEMIA
     Dosage: 10 MG, QD
     Dates: start: 20140520, end: 20140616
  18. TAKEPRON [Concomitant]
     Active Substance: LANSOPRAZOLE
     Indication: GASTROOESOPHAGEAL REFLUX DISEASE
     Dosage: 15 MG, 1D
     Route: 048
     Dates: start: 20120401, end: 20120905
  19. CEPHADOL [Concomitant]
     Active Substance: DIPHENIDOL HYDROCHLORIDE
     Indication: DIZZINESS
     Dosage: 25 MG, TID
     Route: 048
     Dates: start: 20130516, end: 20130522
  20. MARAVIROC [Suspect]
     Active Substance: MARAVIROC
     Indication: HIV INFECTION
     Dosage: 300 MG, 1D
     Route: 048
     Dates: start: 20120905
  21. MERISLON [Concomitant]
     Active Substance: BETAHISTINE MESILATE
     Indication: DIZZINESS
     Dosage: 12 MG, TID
     Route: 048
     Dates: start: 20130516, end: 20130522
  22. NORVIR [Suspect]
     Active Substance: RITONAVIR
     Indication: HIV INFECTION
     Dosage: 200 MG, 1D
     Route: 048
     Dates: start: 20110525
  23. PREZISTA [Suspect]
     Active Substance: DARUNAVIR ETHANOLATE
     Indication: HIV INFECTION
     Dosage: 600 MG, BID
     Route: 048
     Dates: start: 20080227
  24. ZITHROMAC [Concomitant]
     Active Substance: AZITHROMYCIN DIHYDRATE
     Indication: OPPORTUNISTIC INFECTION PROPHYLAXIS
     Dosage: 1200 MG, WE
     Route: 048
     Dates: start: 20120401, end: 20150727
  25. FEBURIC [Concomitant]
     Active Substance: FEBUXOSTAT
     Dosage: 40 MG, QD
     Dates: start: 20140722
  26. ATARAX TABLET (HYDROXYZINE HYDROCHLORIDE) [Concomitant]
     Indication: DIZZINESS
     Dosage: 25 MG, 1D
     Dates: start: 20130516, end: 20130516
  27. FEBURIC [Concomitant]
     Active Substance: FEBUXOSTAT
     Dosage: 20 MG, QD
     Dates: start: 20140617, end: 20140721
  28. FLORID [Concomitant]
     Active Substance: MICONAZOLE
     Indication: ORAL CANDIDIASIS
     Dosage: 200 MG, TID
     Route: 048
     Dates: start: 20130905, end: 20130911
  29. FLORID [Concomitant]
     Active Substance: MICONAZOLE
     Dosage: 200 MG, TID
     Dates: start: 20131001, end: 20131008

REACTIONS (14)
  - Dizziness [Recovered/Resolved]
  - Syphilis [Recovering/Resolving]
  - Oral candidiasis [Recovered/Resolved]
  - Hepatitis B DNA increased [Not Recovered/Not Resolved]
  - Herpes zoster [Recovered/Resolved]
  - Hyperphosphatasaemia [Recovering/Resolving]
  - Obesity [Not Recovered/Not Resolved]
  - Faeces soft [Recovering/Resolving]
  - Transaminases increased [Not Recovered/Not Resolved]
  - Gastrooesophageal reflux disease [Recovering/Resolving]
  - Dermatophytosis of nail [Recovering/Resolving]
  - Protein total increased [Not Recovered/Not Resolved]
  - Blood triglycerides increased [Not Recovered/Not Resolved]
  - Nasopharyngitis [Recovering/Resolving]

NARRATIVE: CASE EVENT DATE: 20080509
